FAERS Safety Report 6025698-6 (Version None)
Quarter: 2008Q4

REPORT INFORMATION
  Report Type: 
  Country: None (occurrence: None)
  Receive Date: 20081231
  Receipt Date: 20081222
  Transmission Date: 20090506
  Serious: Yes (Death, Life-Threatening, Hospitalization)
  Sender: FDA-Public Use
  Company Number: JP-ABBOTT-08P-087-0479524-00

PATIENT
  Age: 77 Year
  Sex: Male

DRUGS (4)
  1. LEUPROLIDE ACETATE [Suspect]
     Indication: PROSTATE CANCER STAGE III
     Dates: start: 20070331, end: 20071211
  2. LEUPROLIDE ACETATE [Suspect]
     Dates: end: 20070306
  3. CASODEX [Concomitant]
     Indication: PROSTATE CANCER STAGE III
     Route: 048
     Dates: end: 20080310
  4. AVISHOT [Concomitant]
     Indication: BENIGN PROSTATIC HYPERPLASIA
     Route: 048
     Dates: end: 20080310

REACTIONS (8)
  - CHRONIC MYELOID LEUKAEMIA [None]
  - GENERAL PHYSICAL HEALTH DETERIORATION [None]
  - HYPERTONIC BLADDER [None]
  - MYELODYSPLASTIC SYNDROME [None]
  - PANCYTOPENIA [None]
  - PNEUMONIA [None]
  - RESTLESSNESS [None]
  - SUBDURAL HAEMATOMA [None]
